FAERS Safety Report 6693985-4 (Version None)
Quarter: 2010Q2

REPORT INFORMATION
  Report Type: 
  Country: None (occurrence: None)
  Receive Date: 20100423
  Receipt Date: 20100414
  Transmission Date: 20101027
  Serious: Yes (Other)
  Sender: FDA-Public Use
  Company Number: FR-JNJFOC-20100404584

PATIENT
  Sex: Male

DRUGS (10)
  1. DURAGESIC-100 [Suspect]
     Indication: DRUG USE FOR UNKNOWN INDICATION
     Route: 062
  2. ACTIQ [Suspect]
     Indication: DRUG USE FOR UNKNOWN INDICATION
     Dosage: 800UG 5 TIMES A DAY AND 400UG ONCE A DAY
     Route: 002
  3. TETRAZEPAM [Concomitant]
     Indication: DRUG USE FOR UNKNOWN INDICATION
     Route: 065
  4. AMITRIPTYLINE HCL [Concomitant]
     Indication: DRUG USE FOR UNKNOWN INDICATION
     Route: 065
  5. CLONAZEPAM [Concomitant]
  6. OMEPRAZOLE [Concomitant]
  7. ACETAMINOPHEN [Concomitant]
  8. NEURONTIN [Concomitant]
  9. HYPERICUM PERFORATUM [Concomitant]
  10. EDEX [Concomitant]
     Route: 050

REACTIONS (4)
  - DYSGEUSIA [None]
  - ORAL DISCOMFORT [None]
  - TEETH BRITTLE [None]
  - TOOTH EXTRACTION [None]
